APPROVED DRUG PRODUCT: APIXABAN
Active Ingredient: APIXABAN
Strength: 2.5MG
Dosage Form/Route: TABLET;ORAL
Application: A210013 | Product #001
Applicant: MICRO LABS LTD
Approved: Dec 23, 2019 | RLD: No | RS: No | Type: DISCN